FAERS Safety Report 8470767-4 (Version None)
Quarter: 2012Q2

REPORT INFORMATION
  Report Type: 
  Country: None (occurrence: None)
  Receive Date: 20120627
  Receipt Date: 20120619
  Transmission Date: 20120825
  Serious: Yes (Hospitalization)
  Sender: FDA-Public Use
  Company Number: US-BAYER-2012-055929

PATIENT
  Age: 28 Year
  Sex: Female
  Weight: 68 kg

DRUGS (2)
  1. DROSPIRENONE AND ETHINYL ESTRADIOL [Suspect]
     Dosage: UNK
     Dates: start: 20081016, end: 20090206
  2. YASMIN [Suspect]
     Dosage: UNK
     Dates: start: 20020906, end: 20081013

REACTIONS (4)
  - INJURY [None]
  - PAIN IN EXTREMITY [None]
  - PAIN [None]
  - DEEP VEIN THROMBOSIS [None]
